FAERS Safety Report 14923401 (Version 2)
Quarter: 2018Q2

REPORT INFORMATION
  Report Type: Spontaneous
  Country: US (occurrence: US)
  Receive Date: 20180522
  Receipt Date: 20180530
  Transmission Date: 20180711
  Serious: Yes (Other)
  Sender: FDA-Public Use
  Company Number: US-GLENMARK PHARMACEUTICALS-2018GMK035519

PATIENT
  Age: 20 Month
  Sex: Female

DRUGS (5)
  1. HYDROCORTISONE BUTYRATE. [Suspect]
     Active Substance: HYDROCORTISONE BUTYRATE
     Dosage: TOTAL OF 5 MG DAILY (~17 MG/M2/D) IN THREE DIVIDED DOSES
     Route: 065
  2. HYDROCORTISONE BUTYRATE. [Suspect]
     Active Substance: HYDROCORTISONE BUTYRATE
     Dosage: 1 MG, TID
     Route: 065
  3. SODIUM CHLORIDE. [Concomitant]
     Active Substance: SODIUM CHLORIDE
     Indication: ADRENOGENITAL SYNDROME
     Dosage: 250 MG, QID
     Route: 065
  4. HYDROCORTISONE BUTYRATE. [Suspect]
     Active Substance: HYDROCORTISONE BUTYRATE
     Indication: ADRENOGENITAL SYNDROME
     Dosage: 2.5 MG, TID (~31 MG/M2/D)
     Route: 065
  5. FLUDROCORTISONE [Concomitant]
     Active Substance: FLUDROCORTISONE
     Indication: ADRENOGENITAL SYNDROME
     Dosage: 0.1 MG, BID
     Route: 065

REACTIONS (3)
  - Cushing^s syndrome [Recovering/Resolving]
  - Product preparation error [Unknown]
  - Incorrect dose administered [Unknown]
